FAERS Safety Report 6010768-9 (Version None)
Quarter: 2008Q4

REPORT INFORMATION
  Report Type: 
  Country: None (occurrence: None)
  Receive Date: 20081218
  Receipt Date: 20081209
  Transmission Date: 20090506
  Serious: Yes (Hospitalization)
  Sender: FDA-Public Use
  Company Number: FR-ASTRAZENECA-2008CG01813

PATIENT
  Age: 17690 Day
  Sex: Female

DRUGS (4)
  1. ZOMIG [Suspect]
     Indication: HEADACHE
     Route: 048
     Dates: start: 20081021, end: 20081031
  2. PROPRANOLOL [Suspect]
     Indication: MIGRAINE
     Route: 048
  3. CYMBALTA [Suspect]
     Indication: DEPRESSION
     Route: 048
     Dates: start: 20081030, end: 20081031
  4. CODOLIPRANE [Suspect]
     Indication: HEADACHE
     Route: 048
     Dates: start: 20081021, end: 20081031

REACTIONS (1)
  - CONVULSION [None]
